FAERS Safety Report 9015628 (Version 1)
Quarter: 2013Q1

REPORT INFORMATION
  Report Type: Spontaneous
  Country: SE (occurrence: None)
  Receive Date: 20130102
  Receipt Date: 20130102
  Transmission Date: 20140127
  Serious: Yes (Hospitalization)
  Sender: FDA-Public Use
  Company Number: DSA_61563_2012

PATIENT
  Age: 66 Year
  Sex: Female

DRUGS (6)
  1. ENALAPRIL MALEATE (ENALAPRIL MALEATE) [Suspect]
     Indication: HYPERTENSION
     Dosage: (DF ORAL)
     Route: 048
  2. METFORMIN (METFORMIN) [Suspect]
     Indication: DIABETES MELLITUS
     Dosage: (DF)
  3. MINDIAB [Suspect]
     Indication: DIABETES MELLITUS
     Dosage: (DF)
  4. LOGIMAX [Concomitant]
  5. RHINOCORT AQUA [Concomitant]
  6. FELODIPINE [Concomitant]

REACTIONS (3)
  - Gastroenteritis [None]
  - Lactic acidosis [None]
  - Renal failure acute [None]
